FAERS Safety Report 8825313 (Version 5)
Quarter: 2013Q4

REPORT INFORMATION
  Report Type: Report from Study
  Country: JP (occurrence: JP)
  Receive Date: 20121004
  Receipt Date: 20131008
  Transmission Date: 20140711
  Serious: Yes (Other)
  Sender: FDA-Public Use
  Company Number: JP-VERTEX PHARMACEUTICAL INC.-AE-2012-007855

PATIENT
  Age: 68 Year
  Sex: Female

DRUGS (13)
  1. VX-950 (TELAPREVIR) [Suspect]
     Indication: CHRONIC HEPATITIS C
     Dosage: 1500 MG, QD
     Route: 048
     Dates: start: 20120509, end: 20120618
  2. VX-950 (TELAPREVIR) [Suspect]
     Dosage: 1500 MG, QD
     Route: 048
     Dates: start: 20120626, end: 20120918
  3. RIBAVIRIN [Suspect]
     Indication: CHRONIC HEPATITIS C
     Dosage: 400 MG, QD
     Route: 048
     Dates: start: 20120509, end: 20120618
  4. RIBAVIRIN [Suspect]
     Dosage: 400 MG, QD
     Route: 048
     Dates: start: 20120626, end: 20120807
  5. RIBAVIRIN [Suspect]
     Dosage: 400 MG, QD
     Route: 048
     Dates: start: 20120828
  6. PEGINTERFERON ALFA-2B [Suspect]
     Indication: CHRONIC HEPATITIS C
     Dosage: 1.5 ?G/KG, QW
     Route: 058
     Dates: start: 20120509, end: 20120523
  7. PEGINTERFERON ALFA-2B [Suspect]
     Dosage: UNK
     Route: 058
     Dates: start: 20120529
  8. PEGINTERFERON ALFA-2B [Suspect]
     Dosage: 1.5 ?G/KG, QW (NOT ADMINISTERED ON 17-JUL-2012)
     Route: 058
     Dates: end: 20120710
  9. PEGINTERFERON ALFA-2B [Suspect]
     Dosage: 1.5 ?G/KG, IRREGULARLY (NOT ADMINISTERED ON 30JUL2012, 09AUG2012, 11SEP2012)
     Route: 058
     Dates: start: 20120724
  10. UBIRON [Concomitant]
     Dosage: 600 MG, QD
     Route: 048
     Dates: end: 20120516
  11. FAMOTIDINE [Concomitant]
     Dosage: 20 MG, UNK
     Route: 048
  12. PERDIPINE [Concomitant]
     Dosage: 40 MG, QD
     Route: 048
  13. INDERAL [Concomitant]
     Dosage: 30 MG, QD
     Route: 048
     Dates: start: 20120520

REACTIONS (2)
  - Anaemia [Not Recovered/Not Resolved]
  - White blood cell count decreased [Recovered/Resolved]
